FAERS Safety Report 8827907 (Version 1)
Quarter: 2012Q4

REPORT INFORMATION
  Report Type: 
  Country: US (occurrence: US)
  Receive Date: 20121005
  Receipt Date: 20121005
  Transmission Date: 20130627
  Serious: No
  Sender: FDA-Public Use
  Company Number: US-VERTEX PHARMACEUTICAL INC.-2012-021341

PATIENT
  Sex: Male
  Weight: 100 kg

DRUGS (6)
  1. VX-950 [Suspect]
     Indication: HEPATITIS C
     Dosage: 750 mg, tid
     Route: 048
     Dates: start: 20120907
  2. RIBAPAK [Concomitant]
     Indication: HEPATITIS C
     Dosage: 1200 mg, qd
     Route: 048
     Dates: start: 20120907
  3. PEGASYS [Concomitant]
     Indication: HEPATITIS C
     Dosage: 180 ?g, weekly
     Route: 058
     Dates: start: 20120907
  4. PROTONIX [Concomitant]
     Dosage: 1 DF, qd
     Route: 048
  5. CLONIDINE [Concomitant]
     Dosage: 0.1 mg, qd
     Route: 061
  6. ZYRTEC [Concomitant]
     Dosage: 1 DF, qd
     Route: 048

REACTIONS (2)
  - Decreased appetite [Unknown]
  - Fatigue [Unknown]
